FAERS Safety Report 7210359-8 (Version None)
Quarter: 2011Q1

REPORT INFORMATION
  Report Type: 
  Country: None (occurrence: None)
  Receive Date: 20110103
  Receipt Date: 20110103
  Transmission Date: 20110831
  Serious: Yes (Life-Threatening, Hospitalization, Disabling)
  Sender: FDA-Public Use
  Company Number: None

PATIENT
  Age: 7 Month
  Sex: Male
  Weight: 5.4432 kg

DRUGS (2)
  1. NIZATIDE 15MG/ML 2ML [Suspect]
     Indication: GASTROOESOPHAGEAL REFLUX DISEASE
     Dosage: 2ML 2 TIMES A DAY PO
     Route: 048
     Dates: start: 20101123, end: 20101124
  2. BETHANECHOL [Suspect]
     Indication: GASTROOESOPHAGEAL REFLUX DISEASE
     Dosage: 1ML 3 TIMES A DAY PO
     Route: 048
     Dates: start: 20101123, end: 20101124

REACTIONS (5)
  - CRYING [None]
  - COUGH [None]
  - EAR INFECTION [None]
  - CONVULSION [None]
  - PHARYNGEAL OEDEMA [None]
